FAERS Safety Report 18338275 (Version 1)
Quarter: 2020Q4

REPORT INFORMATION
  Report Type: Report from Study
  Country: HU (occurrence: HU)
  Receive Date: 20201002
  Receipt Date: 20201002
  Transmission Date: 20210113
  Serious: Yes (Death)
  Sender: FDA-Public Use
  Company Number: NVSC2020HU266620

PATIENT
  Sex: Male

DRUGS (2)
  1. CLEXANE [Concomitant]
     Active Substance: ENOXAPARIN SODIUM
     Indication: ATRIAL FIBRILLATION
     Dosage: 0.6 ML, QD (IN THE EVENING)
     Route: 058
     Dates: start: 202004
  2. ZARZIO [Suspect]
     Active Substance: FILGRASTIM
     Indication: PROPHYLAXIS
     Dosage: UNK UNK, QD (1X1)
     Route: 058
     Dates: start: 202006

REACTIONS (3)
  - Respiratory failure [Fatal]
  - Squamous cell carcinoma of lung [Fatal]
  - Cardiovascular insufficiency [Fatal]
